FAERS Safety Report 20746043 (Version 2)
Quarter: 2022Q2

REPORT INFORMATION
  Report Type: Report from Study
  Country: EG (occurrence: EG)
  Receive Date: 20220425
  Receipt Date: 20220502
  Transmission Date: 20220720
  Serious: Yes (Other)
  Sender: FDA-Public Use
  Company Number: EG-NOVARTISPH-NVSC2022EG094772

PATIENT
  Age: 11 Year
  Sex: Female

DRUGS (4)
  1. OMNITROPE [Suspect]
     Active Substance: SOMATROPIN
     Indication: Growth hormone deficiency
     Dosage: 1.4 MG, QD (SERIAL NO: 31902457)
     Route: 058
     Dates: start: 20220407
  2. ZINC [Concomitant]
     Active Substance: ZINC
     Indication: Malnutrition
     Dosage: 1 DOSAGE FORM, QD (ONE SPOON)
     Route: 048
     Dates: start: 202202
  3. DECAL B12 [Concomitant]
     Indication: Malnutrition
     Dosage: 1 DOSAGE FORM, QD (ONE SPOON)
     Route: 048
     Dates: start: 202202
  4. SANOSVIT CALCIUM [Concomitant]
     Indication: Malnutrition
     Dosage: 1 DOSAGE FORM, QD (ONE SPOON)
     Route: 048
     Dates: start: 202202

REACTIONS (5)
  - Pain in extremity [Not Recovered/Not Resolved]
  - Injection site bruising [Not Recovered/Not Resolved]
  - Injection site haemorrhage [Not Recovered/Not Resolved]
  - Injection site extravasation [Not Recovered/Not Resolved]
  - Incorrect dose administered [Not Recovered/Not Resolved]

NARRATIVE: CASE EVENT DATE: 20220407
